FAERS Safety Report 24262150 (Version 1)
Quarter: 2024Q3

REPORT INFORMATION
  Report Type: Spontaneous
  Country: US (occurrence: US)
  Receive Date: 20240829
  Receipt Date: 20240829
  Transmission Date: 20241016
  Serious: No
  Sender: BOSTON SCIENTIFIC
  Company Number: US-BSC-2023000108

PATIENT
  Age: 70 Year

DRUGS (2)
  1. VARITHENA [Suspect]
     Active Substance: POLIDOCANOL
     Indication: Off label use
  2. VARITHENA [Suspect]
     Active Substance: POLIDOCANOL
     Indication: Off label use
     Dates: start: 202303

REACTIONS (2)
  - Pruritus [Unknown]
  - Off label use [Unknown]

NARRATIVE: CASE EVENT DATE: 20230301
